FAERS Safety Report 7215688-X (Version None)
Quarter: 2011Q1

REPORT INFORMATION
  Report Type: 
  Country: None (occurrence: None)
  Receive Date: 20110107
  Receipt Date: 20101228
  Transmission Date: 20110831
  Serious: Yes (Other)
  Sender: FDA-Public Use
  Company Number: US-MYLANLABS-2010S1021334

PATIENT
  Age: 67 Year
  Sex: Male

DRUGS (3)
  1. CLONIDINE HYDROCHLORIDE [Suspect]
     Route: 048
     Dates: start: 20101101
  2. ASPIRIN [Concomitant]
  3. CLONIDINE HYDROCHLORIDE [Suspect]
     Indication: BLOOD PRESSURE INCREASED
     Route: 048
     Dates: start: 20101104, end: 20101101

REACTIONS (4)
  - DRUG EFFECT DECREASED [None]
  - CHEST PAIN [None]
  - ANXIETY [None]
  - BLOOD PRESSURE INCREASED [None]
